FAERS Safety Report 5590840-8 (Version None)
Quarter: 2008Q1

REPORT INFORMATION
  Report Type: 
  Country: None (occurrence: None)
  Receive Date: 20080110
  Receipt Date: 20080102
  Transmission Date: 20080703
  Serious: Yes (Life-Threatening, Hospitalization)
  Sender: FDA-Public Use
  Company Number: 2008-00024

PATIENT
  Age: 39 Year
  Sex: Male

DRUGS (4)
  1. FIORINAL [Suspect]
     Indication: DRUG USE FOR UNKNOWN INDICATION
     Dosage: 975 MG, OF ASA, ORAL
     Route: 048
     Dates: start: 20070101
  2. FORTAMET [Suspect]
     Indication: DRUG USE FOR UNKNOWN INDICATION
     Dosage: 6500 MG, ORAL
     Route: 048
     Dates: start: 20070101
  3. AMLODIPINE [Suspect]
     Dosage: 280 MG, ORAL
     Route: 048
     Dates: start: 20070101
  4. DOXAZOSIN MESYLATE [Suspect]
     Dosage: 112 MG, ORAL
     Route: 048
     Dates: start: 20070101

REACTIONS (2)
  - HYPOTENSION [None]
  - MULTIPLE DRUG OVERDOSE [None]
